FAERS Safety Report 9686397 (Version 2)
Quarter: 2013Q4

REPORT INFORMATION
  Report Type: Spontaneous
  Country: JP (occurrence: JP)
  Receive Date: 20131113
  Receipt Date: 20131210
  Transmission Date: 20140711
  Serious: No
  Sender: FDA-Public Use
  Company Number: JP-ASTRAZENECA-2013SE81646

PATIENT
  Age: 74 Year
  Sex: Female

DRUGS (5)
  1. CRESTOR [Suspect]
     Indication: HYPERLIPIDAEMIA
     Route: 048
     Dates: end: 20130928
  2. EPADEL S [Suspect]
     Indication: HYPERTENSION
     Route: 048
     Dates: end: 20130928
  3. MICARDIS [Suspect]
     Indication: HYPERTENSION
     Route: 048
     Dates: end: 20130928
  4. URSO [Suspect]
     Indication: CHOLECYSTITIS
     Route: 048
     Dates: start: 20130919, end: 20130928
  5. COSPANON [Suspect]
     Indication: CHOLECYSTITIS
     Route: 048
     Dates: start: 20130919, end: 20130928

REACTIONS (1)
  - Generalised erythema [Recovered/Resolved]
